FAERS Safety Report 9638399 (Version 1)
Quarter: 2013Q4

REPORT INFORMATION
  Report Type: Spontaneous
  Country: IN (occurrence: IN)
  Receive Date: 20131022
  Receipt Date: 20131022
  Transmission Date: 20140711
  Serious: Yes (Hospitalization)
  Sender: FDA-Public Use
  Company Number: PHHY2013IN115805

PATIENT
  Age: 24 Year
  Sex: Male

DRUGS (9)
  1. ALPRAZOLAM [Suspect]
     Indication: FEELING OF RELAXATION
     Dosage: 2 MG, PER DAY
  2. ALPRAZOLAM [Suspect]
     Dosage: 4 MG, PER DAY
  3. ALPRAZOLAM [Suspect]
     Dosage: 8 DF, PER DAY
  4. TRAMADOL + PARACETAMOL [Suspect]
     Indication: FATIGUE
     Dosage: 3 DF, UNK
  5. TRAMADOL + PARACETAMOL [Suspect]
     Dosage: 6 DF, PER DAY
  6. TRAMADOL + PARACETAMOL [Suspect]
     Dosage: 8 DF, PER DAY
  7. TRAMADOL + PARACETAMOL [Suspect]
     Dosage: 16 DF, PER DAY
  8. TRAMADOL + PARACETAMOL [Suspect]
     Dosage: 12 DF, PER DAY
  9. TRAMADOL + PARACETAMOL [Suspect]
     Dosage: 15 DF, PER DAY

REACTIONS (4)
  - Premature ejaculation [Unknown]
  - Headache [Unknown]
  - Withdrawal syndrome [Unknown]
  - Drug dependence [Unknown]
